FAERS Safety Report 10385492 (Version 1)
Quarter: 2014Q3

REPORT INFORMATION
  Report Type: Spontaneous
  Country: FR (occurrence: FR)
  Receive Date: 20140814
  Receipt Date: 20140814
  Transmission Date: 20150326
  Serious: Yes (Hospitalization)
  Sender: FDA-Public Use
  Company Number: FR-GLAXOSMITHKLINE-B1022120A

PATIENT
  Age: 88 Year
  Sex: Female

DRUGS (3)
  1. ZOPICLONE [Concomitant]
     Active Substance: ZOPICLONE
     Indication: INSOMNIA
     Route: 065
  2. LAMICTAL [Suspect]
     Active Substance: LAMOTRIGINE
     Indication: PRODUCT USED FOR UNKNOWN INDICATION
     Route: 048
     Dates: start: 20140206
  3. ELECTROCONVULSIVE THERAPY [Concomitant]
     Active Substance: UNSPECIFIED INGREDIENT
     Indication: PRODUCT USED FOR UNKNOWN INDICATION
     Route: 050

REACTIONS (2)
  - Hallucination, visual [Recovered/Resolved]
  - Cognitive disorder [Unknown]

NARRATIVE: CASE EVENT DATE: 20140327
